FAERS Safety Report 9753126 (Version 1)
Quarter: 2013Q4

REPORT INFORMATION
  Report Type: Spontaneous
  Country: US (occurrence: US)
  Receive Date: 20131213
  Receipt Date: 20131213
  Transmission Date: 20140711
  Serious: No
  Sender: FDA-Public Use
  Company Number: US-GILEAD-2010-0026390

PATIENT
  Sex: Female
  Weight: 74.84 kg

DRUGS (12)
  1. LETAIRIS [Suspect]
     Indication: PULMONARY ARTERIAL HYPERTENSION
     Route: 048
     Dates: start: 20090616
  2. DIOVAN [Concomitant]
  3. CARVEDILOL [Concomitant]
  4. AMLODIPINE BESYLATE [Concomitant]
  5. ASPIRIN [Concomitant]
  6. LUMIGAN [Concomitant]
  7. ISOSORBIDE MN [Concomitant]
  8. PREDNISONE [Concomitant]
  9. CITALOPRAM HBR [Concomitant]
  10. CRESTOR [Concomitant]
  11. METFORMIN HCL [Concomitant]
  12. GLIPIZIDE XL [Concomitant]

REACTIONS (1)
  - Fluid retention [Unknown]
